FAERS Safety Report 25062863 (Version 1)
Quarter: 2025Q1

REPORT INFORMATION
  Report Type: Spontaneous
  Country: DE (occurrence: DE)
  Receive Date: 20250311
  Receipt Date: 20250311
  Transmission Date: 20250408
  Serious: Yes (Hospitalization)
  Sender: AUROBINDO
  Company Number: DE-ROCHE-10000208598

PATIENT
  Age: 74 Year
  Sex: Male
  Weight: 63 kg

DRUGS (5)
  1. DOCETAXEL [Suspect]
     Active Substance: DOCETAXEL
     Indication: Oesophageal adenocarcinoma
     Dosage: LAST DOSE GIVEN BEFORE ONSET OF THE RAE: 15/AUG/2024, 84 MG
     Route: 042
     Dates: start: 20240718
  2. OXALIPLATIN [Suspect]
     Active Substance: OXALIPLATIN
     Indication: Oesophageal adenocarcinoma
     Dosage: LAST DOSE GIVEN BEFORE ONSET OF THE RAE: 105 MG 28/JAN/2025
     Route: 042
     Dates: start: 20240718
  3. ATEZOLIZUMAB [Suspect]
     Active Substance: ATEZOLIZUMAB
     Indication: Oesophageal adenocarcinoma
     Route: 042
     Dates: start: 20240718
  4. LEUCOVORIN [Suspect]
     Active Substance: LEUCOVORIN\LEUCOVORIN CALCIUM
     Indication: Oesophageal adenocarcinoma
     Dosage: LAST DOSE GIVEN BEFORE ONSET OF THE RAE: 28/JAN/2025. 250MG
     Route: 042
     Dates: start: 20240718
  5. FLUOROURACIL [Suspect]
     Active Substance: FLUOROURACIL
     Indication: Oesophageal adenocarcinoma
     Dosage: LAST DOSE GIVEN BEFORE ONSET OF THE RAE: 28/JAN/2025, 3225MG
     Route: 042
     Dates: start: 20240718

REACTIONS (1)
  - Pleural effusion [Not Recovered/Not Resolved]

NARRATIVE: CASE EVENT DATE: 20250210
